FAERS Safety Report 12613887 (Version 1)
Quarter: 2016Q3

REPORT INFORMATION
  Report Type: Spontaneous
  Country: US (occurrence: None)
  Receive Date: 20160801
  Receipt Date: 20160801
  Transmission Date: 20161109
  Serious: Yes (Life-Threatening, Hospitalization)
  Sender: FDA-Public Use
  Company Number: None

PATIENT
  Age: 58 Year
  Sex: Female
  Weight: 111.13 kg

DRUGS (4)
  1. MULTIVITAMIN [Concomitant]
     Active Substance: VITAMINS
  2. HUMIRA [Suspect]
     Active Substance: ADALIMUMAB
     Indication: PSORIASIS
     Dosage: 1 PEN EVERY OTHER WEKK GIVEN INTO/UNDER THE SKIN
     Route: 058
     Dates: start: 20080701
  3. HUMIRA [Suspect]
     Active Substance: ADALIMUMAB
     Indication: PSORIATIC ARTHROPATHY
     Dosage: 1 PEN EVERY OTHER WEKK GIVEN INTO/UNDER THE SKIN
     Route: 058
     Dates: start: 20080701
  4. VITAMIN B12 [Concomitant]
     Active Substance: CYANOCOBALAMIN

REACTIONS (5)
  - Chest pain [None]
  - Cardiac failure congestive [None]
  - Pulmonary embolism [None]
  - Atelectasis [None]
  - Deep vein thrombosis [None]

NARRATIVE: CASE EVENT DATE: 20151221
